FAERS Safety Report 9702604 (Version 1)
Quarter: 2013Q4

REPORT INFORMATION
  Report Type: Spontaneous
  Country: US (occurrence: US)
  Receive Date: 20131121
  Receipt Date: 20131121
  Transmission Date: 20140711
  Serious: Yes (Other)
  Sender: FDA-Public Use
  Company Number: US-ALLERGAN-1318068US

PATIENT
  Age: 46 Year
  Sex: Female

DRUGS (6)
  1. BOTOX COSMETIC [Suspect]
     Indication: SKIN WRINKLING
     Dosage: 40 UNITS, SINGLE
     Route: 030
     Dates: start: 20131114, end: 20131114
  2. BOTOX COSMETIC [Suspect]
     Indication: SKIN WRINKLING
  3. SYNTHROID [Concomitant]
     Indication: HYPOTHYROIDISM
     Dosage: UNK
     Route: 048
  4. VIT D [Concomitant]
     Indication: VITAMIN SUPPLEMENTATION
     Dosage: UNK
     Route: 048
  5. BIOTIN [Concomitant]
     Indication: VITAMIN SUPPLEMENTATION
     Dosage: UNK
     Route: 048
  6. ADVIL [Concomitant]
     Indication: HEADACHE
     Dosage: UNK
     Route: 048

REACTIONS (10)
  - Swollen tongue [Recovered/Resolved]
  - Reaction to preservatives [Recovered/Resolved]
  - Dysphagia [Recovered/Resolved]
  - Dyspnoea [Recovering/Resolving]
  - Pharyngeal oedema [Recovered/Resolved]
  - Hypoaesthesia oral [Recovered/Resolved]
  - Wrong technique in drug usage process [Unknown]
  - Allergy to chemicals [Recovered/Resolved]
  - Flushing [Recovering/Resolving]
  - Erythema [Recovering/Resolving]
